FAERS Safety Report 20199102 (Version 4)
Quarter: 2022Q1

REPORT INFORMATION
  Report Type: Spontaneous
  Country: IT (occurrence: IT)
  Receive Date: 20211217
  Receipt Date: 20220211
  Transmission Date: 20220424
  Serious: Yes (Other)
  Sender: FDA-Public Use
  Company Number: IT-TAKEDA-2021TUS079712

PATIENT
  Age: 60 Year
  Sex: Male

DRUGS (10)
  1. PONATINIB [Suspect]
     Active Substance: PONATINIB
     Indication: Philadelphia positive acute lymphocytic leukaemia
     Dosage: 45 MILLIGRAM, QD
     Route: 065
  2. PONATINIB [Suspect]
     Active Substance: PONATINIB
     Dosage: 30 MILLIGRAM, QD
     Route: 065
  3. PONATINIB [Suspect]
     Active Substance: PONATINIB
     Dosage: 15 MILLIGRAM, QD
     Route: 065
  4. HUMAN IMMUNOGLOBULIN G [Suspect]
     Active Substance: HUMAN IMMUNOGLOBULIN G
     Indication: Guillain-Barre syndrome
     Dosage: UNK
     Route: 042
  5. DEXAMETHASONE [Suspect]
     Active Substance: DEXAMETHASONE
     Indication: Philadelphia positive acute lymphocytic leukaemia
     Dosage: UNK
     Route: 065
  6. VINCRISTINE [Suspect]
     Active Substance: VINCRISTINE
     Indication: Philadelphia positive acute lymphocytic leukaemia
     Dosage: UNK
     Route: 065
  7. PREDNISONE [Suspect]
     Active Substance: PREDNISONE
     Indication: Philadelphia positive acute lymphocytic leukaemia
     Dosage: 1 MILLIGRAM/KILOGRAM
     Route: 065
  8. CYCLOPHOSPHAMIDE [Suspect]
     Active Substance: CYCLOPHOSPHAMIDE
     Indication: Philadelphia positive acute lymphocytic leukaemia
     Dosage: UNK
     Route: 065
  9. ADRIAMYCIN [Suspect]
     Active Substance: DOXORUBICIN HYDROCHLORIDE
     Indication: Philadelphia positive acute lymphocytic leukaemia
     Dosage: UNK
     Route: 065
  10. METHYLPREDNISOLONE [Concomitant]
     Active Substance: METHYLPREDNISOLONE
     Indication: Philadelphia positive acute lymphocytic leukaemia
     Dosage: 1 MILLIGRAM/KILOGRAM
     Route: 065

REACTIONS (3)
  - Pneumonia fungal [Unknown]
  - Febrile neutropenia [Unknown]
  - Drug ineffective [Unknown]
